FAERS Safety Report 5464937-7 (Version None)
Quarter: 2007Q3

REPORT INFORMATION
  Report Type: 
  Country: None (occurrence: None)
  Receive Date: 20070820
  Receipt Date: 20070711
  Transmission Date: 20080115
  Serious: No
  Sender: FDA-Public Use
  Company Number: TPA2007A01257

PATIENT
  Age: 25 Year
  Sex: Female
  Weight: 59.8748 kg

DRUGS (3)
  1. ROZEREM [Suspect]
     Indication: INSOMNIA
     Dosage: 8 MG, QHS, PER ORAL
     Route: 048
     Dates: start: 20070604, end: 20070607
  2. SEROQUEL [Concomitant]
  3. TEMAZEPAM [Concomitant]

REACTIONS (4)
  - DRUG INEFFECTIVE [None]
  - HYPERHIDROSIS [None]
  - MIDDLE INSOMNIA [None]
  - SOMNOLENCE [None]
